FAERS Safety Report 15935734 (Version 2)
Quarter: 2019Q1

REPORT INFORMATION
  Report Type: Report from Study
  Country: JP (occurrence: JP)
  Receive Date: 20190208
  Receipt Date: 20190223
  Transmission Date: 20190417
  Serious: Yes (Hospitalization, Other)
  Sender: FDA-Public Use
  Company Number: JP-AMGEN-JPNCT2019012960

PATIENT
  Age: 72 Year
  Sex: Male
  Weight: 46 kg

DRUGS (9)
  1. PANITUMUMAB [Suspect]
     Active Substance: PANITUMUMAB
     Indication: RECTAL CANCER
     Dosage: 280 MG, Q2WK
     Route: 041
     Dates: start: 20180214
  2. IRINOTECAN HYDROCHLORIDE. [Concomitant]
     Active Substance: IRINOTECAN HYDROCHLORIDE
     Indication: RECTAL CANCER
     Dosage: 220 MG, Q2WK
     Route: 041
     Dates: start: 20180214
  3. 5-FU [Concomitant]
     Active Substance: FLUOROURACIL
     Dosage: 3500 MG, Q2WK
     Route: 041
     Dates: start: 20180214
  4. GRIMAC [Concomitant]
     Indication: GASTRITIS PROPHYLAXIS
     Dosage: 0.5 G, UNK
     Route: 048
  5. MINOMYCIN [Concomitant]
     Active Substance: MINOCYCLINE HYDROCHLORIDE
     Indication: RASH
     Dosage: 100 MG, QD
     Route: 048
  6. 5-FU [Concomitant]
     Active Substance: FLUOROURACIL
     Indication: RECTAL CANCER
     Dosage: 580 MG, Q2WK
     Route: 040
     Dates: start: 20180214
  7. CANDESARTAN. [Concomitant]
     Active Substance: CANDESARTAN
     Indication: HYPERTENSION
     Dosage: 2 MG, BID
     Route: 048
  8. CALCIUM LEVOFOLINATE [Concomitant]
     Active Substance: LEVOLEUCOVORIN CALCIUM
     Indication: RECTAL CANCER
     Dosage: UNK
     Route: 041
     Dates: start: 20180214
  9. AMLODIPINE [Concomitant]
     Active Substance: AMLODIPINE BESYLATE
     Indication: HYPERTENSION
     Dosage: 5 MG, BID
     Route: 048

REACTIONS (10)
  - Cholangitis [Recovered/Resolved]
  - Metastases to liver [Not Recovered/Not Resolved]
  - Ileus [Recovered/Resolved]
  - Bile duct stenosis [Recovered/Resolved]
  - Condition aggravated [Not Recovered/Not Resolved]
  - Neutrophil count decreased [Recovered/Resolved]
  - Pyrexia [Recovered/Resolved]
  - Pneumonia [Not Recovered/Not Resolved]
  - Sepsis [Recovered/Resolved]
  - General physical health deterioration [Recovered/Resolved]

NARRATIVE: CASE EVENT DATE: 20181221
